FAERS Safety Report 17025882 (Version 1)
Quarter: 2019Q4

REPORT INFORMATION
  Report Type: Spontaneous
  Country: US (occurrence: US)
  Receive Date: 20191009
  Receipt Date: 20191009
  Transmission Date: 20200122
  Serious: No
  Sender: FDA-Public Use
  Company Number: None

PATIENT
  Age: 61 Year
  Sex: Male

DRUGS (1)
  1. OCTREOTIDE VIAL 100MCG/ML [Suspect]
     Active Substance: OCTREOTIDE
     Route: 058
     Dates: start: 20190901

REACTIONS (4)
  - Fatigue [None]
  - Diarrhoea [None]
  - Dehydration [None]
  - Ulcer haemorrhage [None]

NARRATIVE: CASE EVENT DATE: 20191009
